FAERS Safety Report 6927760-X (Version None)
Quarter: 2010Q3

REPORT INFORMATION
  Report Type: 
  Country: None (occurrence: None)
  Receive Date: 20100817
  Receipt Date: 20100811
  Transmission Date: 20110219
  Serious: Yes (Hospitalization)
  Sender: FDA-Public Use
  Company Number: FR-AMGEN-KDC416317

PATIENT
  Sex: Female
  Weight: 82 kg

DRUGS (4)
  1. VECTIBIX [Suspect]
     Indication: BREAST CANCER
     Route: 041
     Dates: start: 20100304
  2. CYCLOPHOSPHAMIDE [Suspect]
     Route: 041
     Dates: start: 20100304
  3. FLUOROURACIL [Suspect]
     Route: 042
     Dates: start: 20100304
  4. FARMORUBICIN [Suspect]
     Dates: start: 20100304

REACTIONS (2)
  - APLASIA [None]
  - PYREXIA [None]
